FAERS Safety Report 6587536-2 (Version None)
Quarter: 2010Q1

REPORT INFORMATION
  Report Type: 
  Country: None (occurrence: None)
  Receive Date: 20100218
  Receipt Date: 20070703
  Transmission Date: 20100710
  Serious: Yes (Hospitalization, Other)
  Sender: FDA-Public Use
  Company Number: US-ASTRAZENECA-2006UW24001

PATIENT
  Age: 12587 Day
  Sex: Female
  Weight: 65.8 kg

DRUGS (6)
  1. SEROQUEL [Suspect]
     Route: 048
     Dates: start: 20020313
  2. ALPRAZOLAM [Concomitant]
     Dosage: 0.5 MG DISPENSED
     Dates: start: 20020129
  3. AMBIEN [Concomitant]
     Dosage: 10 MG DISPENSED
     Dates: start: 20020129
  4. HYDROCODONE BITARTRATE AND ACETAMINOPHEN [Concomitant]
     Dosage: 5/500 DISPENSED
     Dates: start: 20010619
  5. GLUCOPHAGE [Concomitant]
     Route: 048
     Dates: start: 20051113
  6. GLUCOTROL [Concomitant]
     Indication: DIABETES MELLITUS
     Dosage: 5-10 MG
     Route: 048
     Dates: start: 19941123

REACTIONS (6)
  - DIABETES MELLITUS [None]
  - DIABETES MELLITUS INADEQUATE CONTROL [None]
  - DIABETIC COMA [None]
  - DIABETIC FOOT [None]
  - DIABETIC VASCULAR DISORDER [None]
  - TYPE 2 DIABETES MELLITUS [None]
